FAERS Safety Report 6076146-1 (Version None)
Quarter: 2009Q1

REPORT INFORMATION
  Report Type: 
  Country: None (occurrence: None)
  Receive Date: 20090212
  Receipt Date: 20090206
  Transmission Date: 20090719
  Serious: No
  Sender: FDA-Public Use
  Company Number: US-B.I. PHARMACEUTICALS,INC./RIDGEFIELD-2009-BP-01519BP

PATIENT
  Age: 55 Year
  Sex: Female

DRUGS (8)
  1. ZANTAC 150 [Suspect]
     Indication: DYSPEPSIA
     Dosage: 450MG
     Route: 048
     Dates: start: 20090206
  2. ENBREL [Concomitant]
     Indication: ARTHRITIS
     Route: 048
  3. PRAVASTATIN SODIUM [Concomitant]
     Indication: BLOOD CHOLESTEROL
     Route: 048
  4. ZETIA [Concomitant]
     Indication: BLOOD CHOLESTEROL
     Route: 048
  5. TOPROL-XL [Concomitant]
     Indication: BLOOD PRESSURE INCREASED
     Route: 048
  6. CALCIUM [Concomitant]
     Indication: SUPPLEMENTATION THERAPY
     Route: 048
  7. VITAMINS [Concomitant]
     Indication: SUPPLEMENTATION THERAPY
     Route: 048
  8. IRON [Concomitant]
     Indication: SUPPLEMENTATION THERAPY
     Route: 048

REACTIONS (2)
  - DRUG INEFFECTIVE [None]
  - INTENTIONAL DRUG MISUSE [None]
